FAERS Safety Report 9774001 (Version 1)
Quarter: 2013Q4

REPORT INFORMATION
  Report Type: Spontaneous
  Country: US (occurrence: US)
  Receive Date: 20131220
  Receipt Date: 20131220
  Transmission Date: 20140711
  Serious: No
  Sender: FDA-Public Use
  Company Number: US-BIOGENIDEC-2013BI107356

PATIENT
  Sex: Male

DRUGS (1)
  1. AVONEX [Suspect]
     Indication: MULTIPLE SCLEROSIS
     Route: 030
     Dates: start: 20030827, end: 20131001

REACTIONS (3)
  - Liver disorder [Not Recovered/Not Resolved]
  - Dementia [Not Recovered/Not Resolved]
  - Hepatic function abnormal [Recovered/Resolved]
